FAERS Safety Report 8376156-5 (Version None)
Quarter: 2012Q2

REPORT INFORMATION
  Report Type: 
  Country: None (occurrence: None)
  Receive Date: 20120522
  Receipt Date: 20120510
  Transmission Date: 20120825
  Serious: Yes (Other)
  Sender: FDA-Public Use
  Company Number: US-SANOFI-AVENTIS-2012SA033571

PATIENT
  Age: 63 Year
  Sex: Male

DRUGS (3)
  1. PLAVIX [Suspect]
     Route: 048
  2. PLAVIX [Suspect]
     Route: 048
  3. ALEVE /00256202/ [Concomitant]

REACTIONS (5)
  - TRANSIENT ISCHAEMIC ATTACK [None]
  - HAEMATOCHEZIA [None]
  - LOWER GASTROINTESTINAL HAEMORRHAGE [None]
  - NARCOLEPSY [None]
  - HAEMORRHAGE [None]
